FAERS Safety Report 22638418 (Version 4)
Quarter: 2024Q1

REPORT INFORMATION
  Report Type: Spontaneous
  Country: US (occurrence: US)
  Receive Date: 20230626
  Receipt Date: 20240201
  Transmission Date: 20240410
  Serious: Yes (Death, Other)
  Sender: FDA-Public Use
  Company Number: US-SA-SAC20230622000753

PATIENT
  Age: 37 Year
  Sex: Female
  Weight: 35.47 kg

DRUGS (4)
  1. CAPRELSA [Suspect]
     Active Substance: VANDETANIB
     Indication: Thyroid cancer
     Dosage: 300 MG, QD
     Route: 048
     Dates: start: 20230520
  2. CAPRELSA [Suspect]
     Active Substance: VANDETANIB
     Indication: Adrenal gland cancer
  3. HYDROCODONE [Concomitant]
     Active Substance: HYDROCODONE
     Dosage: UNK
  4. OXYCODONE [Concomitant]
     Active Substance: OXYCODONE\OXYCODONE HYDROCHLORIDE
     Dosage: UNK

REACTIONS (4)
  - Death [Fatal]
  - Hepatic enzyme decreased [Recovering/Resolving]
  - Complication associated with device [Unknown]
  - Product use in unapproved indication [Unknown]

NARRATIVE: CASE EVENT DATE: 20230520
